FAERS Safety Report 23781866 (Version 1)
Quarter: 2024Q2

REPORT INFORMATION
  Report Type: Spontaneous
  Country: US (occurrence: US)
  Receive Date: 20240425
  Receipt Date: 20240425
  Transmission Date: 20240716
  Serious: No
  Sender: FDA-Public Use
  Company Number: US-CIPLA LTD-2023US02603

PATIENT

DRUGS (3)
  1. ALBUTEROL [Suspect]
     Active Substance: ALBUTEROL
     Indication: Nasopharyngitis
     Dosage: UNK
     Route: 065
  2. ALBUTEROL [Suspect]
     Active Substance: ALBUTEROL
     Indication: Nasal congestion
  3. ALBUTEROL [Suspect]
     Active Substance: ALBUTEROL
     Indication: Bronchitis

REACTIONS (6)
  - Incorrect dose administered [Unknown]
  - Product delivery mechanism issue [Unknown]
  - Device issue [Unknown]
  - Device delivery system issue [Unknown]
  - Wrong technique in product usage process [Unknown]
  - Off label use [Unknown]
